FAERS Safety Report 13731226 (Version 1)
Quarter: 2017Q3

REPORT INFORMATION
  Report Type: Spontaneous
  Country: US (occurrence: US)
  Receive Date: 20170707
  Receipt Date: 20170707
  Transmission Date: 20171127
  Serious: No
  Sender: FDA-Public Use
  Company Number: US-JNJFOC-20151008474

PATIENT
  Sex: Male

DRUGS (6)
  1. RISPERDAL [Suspect]
     Active Substance: RISPERIDONE
     Indication: BIPOLAR I DISORDER
     Route: 048
     Dates: start: 2014
  2. INVEGA [Suspect]
     Active Substance: PALIPERIDONE
     Indication: BIPOLAR I DISORDER
     Dosage: VARYING DOSES OF 1.5 MG AND 6 MG.
     Route: 048
     Dates: start: 2011, end: 2013
  3. RISPERDAL [Suspect]
     Active Substance: RISPERIDONE
     Indication: BIPOLAR I DISORDER
     Dosage: RISPERDAL WAS GIVEN AT A VARYING DOSES OF 0.5 MG, 1 MG AND 1.5 MG
     Route: 048
     Dates: start: 2009, end: 2010
  4. INVEGA [Suspect]
     Active Substance: PALIPERIDONE
     Indication: BIPOLAR I DISORDER
     Dosage: VARYING DOSES OF 1.5 MG AND 6 MG.
     Route: 048
     Dates: start: 2010, end: 2013
  5. INVEGA SUSTENNA [Suspect]
     Active Substance: PALIPERIDONE PALMITATE
     Indication: BIPOLAR I DISORDER
     Dosage: DOSE 234 MG INJECTION.
     Route: 030
     Dates: start: 2009, end: 2010
  6. RISPERDAL [Suspect]
     Active Substance: RISPERIDONE
     Indication: BIPOLAR I DISORDER
     Dosage: RISPERDAL WAS GIVEN AT A VARYING DOSES OF 2 MG AND 0.25 MG.
     Route: 048
     Dates: start: 2014, end: 2015

REACTIONS (2)
  - Weight increased [Unknown]
  - Gynaecomastia [Unknown]

NARRATIVE: CASE EVENT DATE: 2009
